FAERS Safety Report 5216745-X (Version None)
Quarter: 2007Q1

REPORT INFORMATION
  Report Type: 
  Country: None (occurrence: None)
  Receive Date: 20070118
  Receipt Date: 20070105
  Transmission Date: 20070707
  Serious: Yes (Hospitalization)
  Sender: FDA-Public Use
  Company Number: 07-000043

PATIENT
  Age: 79 Year
  Sex: Female

DRUGS (2)
  1. PYRIDIUM (PHENAZOPYRIDINE HYDROCHLORIDE) TABLET, 100 MG [Suspect]
     Indication: DYSURIA
     Dosage: 600 MG, QD, ORAL; SEE IMAGE
     Route: 048
  2. AZO-MENDELAMINE() [Suspect]
     Indication: DYSURIA

REACTIONS (11)
  - ABDOMINAL PAIN [None]
  - ANAEMIA HEINZ BODY [None]
  - BACK PAIN [None]
  - BLOOD CREATININE INCREASED [None]
  - BLOOD UREA INCREASED [None]
  - ESCHERICHIA URINARY TRACT INFECTION [None]
  - HAEMOLYTIC ANAEMIA [None]
  - MARROW HYPERPLASIA [None]
  - PROTEUS INFECTION [None]
  - URINARY TRACT INFECTION [None]
  - VOMITING [None]
